FAERS Safety Report 13306143 (Version 1)
Quarter: 2017Q1

REPORT INFORMATION
  Report Type: Spontaneous
  Country: US (occurrence: US)
  Receive Date: 20170308
  Receipt Date: 20170308
  Transmission Date: 20170428
  Serious: No
  Sender: FDA-Public Use
  Company Number: US-TARO-2016TAR00856

PATIENT
  Sex: Female

DRUGS (1)
  1. ENALAPRIL MALEATE TABLETS USP 10 MG [Suspect]
     Active Substance: ENALAPRIL MALEATE

REACTIONS (3)
  - Sinusitis [Unknown]
  - Blood pressure fluctuation [Unknown]
  - Drug ineffective [Unknown]
